FAERS Safety Report 11175082 (Version 1)
Quarter: 2015Q2

REPORT INFORMATION
  Report Type: Spontaneous
  Country: US (occurrence: None)
  Receive Date: 20150608
  Receipt Date: 20150608
  Transmission Date: 20150821
  Serious: Yes (Other)
  Sender: FDA-Public Use
  Company Number: None

PATIENT
  Sex: Male
  Weight: 60.78 kg

DRUGS (12)
  1. ALENDRONATE 70 MG ARROW PHARM (MALTA) LIMITED [Suspect]
     Active Substance: ALENDRONATE SODIUM
     Indication: OSTEOPOROSIS
     Dosage: BY MOUTH
     Dates: start: 20150516, end: 20150517
  2. FUROSEMIDE. [Concomitant]
     Active Substance: FUROSEMIDE
  3. CHLORIDO [Concomitant]
  4. LEVOTHYROXINE [Concomitant]
     Active Substance: LEVOTHYROXINE
  5. PRAVACHOL [Concomitant]
     Active Substance: PRAVASTATIN SODIUM
  6. VITAMIN D [Concomitant]
     Active Substance: CHOLECALCIFEROL
  7. COREG [Concomitant]
     Active Substance: CARVEDILOL
  8. ALENDRONATE 70 MG ARROW PHARM (MALTA) LIMITED [Suspect]
     Active Substance: ALENDRONATE SODIUM
     Indication: BONE DENSITY DECREASED
     Dosage: BY MOUTH
     Dates: start: 20150516, end: 20150517
  9. LISINOPRIL. [Concomitant]
     Active Substance: LISINOPRIL
  10. NITROQUICK [Concomitant]
     Active Substance: NITROGLYCERIN
  11. POTASSIUM [Concomitant]
     Active Substance: POTASSIUM
  12. CARVEDILOL. [Concomitant]
     Active Substance: CARVEDILOL

REACTIONS (3)
  - Diarrhoea [None]
  - Paraesthesia [None]
  - Erythema [None]
